FAERS Safety Report 19718703 (Version 1)
Quarter: 2021Q3

REPORT INFORMATION
  Report Type: Spontaneous
  Country: GB (occurrence: GB)
  Receive Date: 20210818
  Receipt Date: 20210818
  Transmission Date: 20211014
  Serious: Yes (Life-Threatening, Hospitalization)
  Sender: FDA-Public Use
  Company Number: GB-ALLERGAN-2127155US

PATIENT

DRUGS (1)
  1. BOTOX [Suspect]
     Active Substance: ONABOTULINUMTOXINA
     Indication: OROPHARYNGEAL SPASM
     Dosage: 100 UNITS, UNK
     Dates: start: 2020, end: 2020

REACTIONS (12)
  - Emotional distress [Unknown]
  - Overdose [Unknown]
  - Dyspnoea [Unknown]
  - Tongue paralysis [Unknown]
  - Off label use [Unknown]
  - Bulbar palsy [Unknown]
  - Aphasia [Unknown]
  - Pharyngeal swelling [Unknown]
  - Throat tightness [Unknown]
  - Mouth swelling [Unknown]
  - General symptom [Unknown]
  - Dysphagia [Unknown]

NARRATIVE: CASE EVENT DATE: 2020
